FAERS Safety Report 8011439-X (Version None)
Quarter: 2011Q4

REPORT INFORMATION
  Report Type: 
  Country: None (occurrence: None)
  Receive Date: 20111228
  Receipt Date: 20111221
  Transmission Date: 20120403
  Serious: Yes (Life-Threatening, Hospitalization, Other)
  Sender: FDA-Public Use
  Company Number: JP-CEPHALON-2011001042

PATIENT
  Sex: Female
  Weight: 58 kg

DRUGS (13)
  1. URSODIOL [Concomitant]
     Dates: start: 20110228
  2. BENDAMUSTINE HCL [Suspect]
     Route: 042
     Dates: start: 20110623, end: 20110624
  3. RAMOSETRON HYDROCHLORIDE [Concomitant]
     Dates: start: 20110208
  4. SENNOSIDE A [Concomitant]
     Dates: start: 20110201
  5. SULFAMETHOXAZOLE SODIUM [Concomitant]
     Dates: start: 20110208
  6. INSULIN HUMAN [Concomitant]
     Dates: start: 20110207
  7. ENTECAVIR [Concomitant]
     Dates: start: 20110215
  8. BENDAMUSTINE HCL [Suspect]
     Route: 042
     Dates: start: 20110825, end: 20110826
  9. INSULIN DETEMIR [Concomitant]
     Dates: start: 20110207
  10. FLUCONAZOLE [Concomitant]
     Dates: start: 20110208
  11. BENDAMUSTINE HCL [Suspect]
     Indication: B-CELL LYMPHOMA
     Route: 042
     Dates: start: 20110208
  12. BENDAMUSTINE HCL [Suspect]
     Route: 042
     Dates: start: 20110721, end: 20110722
  13. OMEPRAZOLE [Concomitant]
     Dates: start: 20110208

REACTIONS (7)
  - NEUTROPHIL COUNT DECREASED [None]
  - LYMPHOCYTE COUNT DECREASED [None]
  - DECREASED APPETITE [None]
  - WHITE BLOOD CELL COUNT DECREASED [None]
  - MALAISE [None]
  - HEPATITIS B [None]
  - PLATELET COUNT DECREASED [None]
